FAERS Safety Report 4730756-X (Version None)
Quarter: 2005Q3

REPORT INFORMATION
  Report Type: 
  Country: None (occurrence: None)
  Receive Date: 20050725
  Receipt Date: 20050517
  Transmission Date: 20060218
  Serious: No
  Sender: FDA-Public Use
  Company Number: USA050598329

PATIENT
  Sex: Female

DRUGS (1)
  1. STRATTERA [Suspect]
     Dosage: 10 MG
     Dates: start: 20050501

REACTIONS (2)
  - ABDOMINAL PAIN UPPER [None]
  - MOOD SWINGS [None]
